FAERS Safety Report 5211047-X (Version None)
Quarter: 2007Q1

REPORT INFORMATION
  Report Type: 
  Country: None (occurrence: None)
  Receive Date: 20070117
  Receipt Date: 20070105
  Transmission Date: 20070707
  Serious: Yes (Hospitalization)
  Sender: FDA-Public Use
  Company Number: FR-PFIZER INC-2007002142

PATIENT
  Age: 59 Year
  Sex: Male
  Weight: 55 kg

DRUGS (3)
  1. SOLU-MEDROL [Suspect]
     Dosage: DAILY DOSE:60MG
     Route: 042
  2. CAELYX [Suspect]
     Indication: COLON CANCER
     Dosage: DAILY DOSE:60MG
     Route: 042
  3. ZOFRAN [Suspect]
     Dosage: DAILY DOSE:8MG
     Route: 042

REACTIONS (3)
  - HYPERSENSITIVITY [None]
  - PRURITUS [None]
  - URTICARIA [None]
